FAERS Safety Report 4459657-1 (Version None)
Quarter: 2004Q3

REPORT INFORMATION
  Report Type: 
  Country: None (occurrence: None)
  Receive Date: 20040917
  Receipt Date: 20040401
  Transmission Date: 20050211
  Serious: No
  Sender: FDA-Public Use
  Company Number: 20040400284

PATIENT
  Sex: Female

DRUGS (1)
  1. PHENYTOIN [Suspect]

REACTIONS (2)
  - RASH [None]
  - URTICARIA [None]
